FAERS Safety Report 7245361-3 (Version None)
Quarter: 2011Q1

REPORT INFORMATION
  Report Type: 
  Country: None (occurrence: None)
  Receive Date: 20110126
  Receipt Date: 20110123
  Transmission Date: 20110831
  Serious: Yes (Hospitalization)
  Sender: FDA-Public Use
  Company Number: DZ-ROCHE-755239

PATIENT
  Sex: Female

DRUGS (2)
  1. DOCETAXEL [Suspect]
     Indication: BREAST CANCER
     Route: 065
  2. AVASTIN [Suspect]
     Indication: BREAST CANCER
     Route: 065

REACTIONS (2)
  - BONE MARROW FAILURE [None]
  - THROMBOCYTOPENIA [None]
